FAERS Safety Report 13380678 (Version 1)
Quarter: 2017Q1

REPORT INFORMATION
  Report Type: Spontaneous
  Country: FR (occurrence: FR)
  Receive Date: 20170329
  Receipt Date: 20170329
  Transmission Date: 20170429
  Serious: Yes (Hospitalization)
  Sender: FDA-Public Use
  Company Number: FR-CONCORDIA PHARMACEUTICALS INC.-GSH201703-002011

PATIENT
  Age: 36 Year
  Sex: Female

DRUGS (7)
  1. ORACILLINE [Concomitant]
     Active Substance: PENICILLIN V
  2. XATRAL [Concomitant]
     Active Substance: ALFUZOSIN
  3. PENICILLIN V [Concomitant]
     Active Substance: PENICILLIN V
  4. AMOXICILLIN. [Concomitant]
     Active Substance: AMOXICILLIN
  5. MECIR [Concomitant]
     Active Substance: TAMSULOSIN HYDROCHLORIDE
  6. PENICILLIN G [Concomitant]
     Active Substance: PENICILLIN G
  7. ALFUZOSIN [Suspect]
     Active Substance: ALFUZOSIN
     Indication: HYPERTONIA
     Route: 048
     Dates: start: 20160301, end: 201604

REACTIONS (1)
  - Face oedema [Recovered/Resolved]

NARRATIVE: CASE EVENT DATE: 201604
